FAERS Safety Report 8990874 (Version 1)
Quarter: 2012Q4

REPORT INFORMATION
  Report Type: Spontaneous
  Country: US (occurrence: None)
  Receive Date: 20121221
  Receipt Date: 20121221
  Transmission Date: 20130627
  Serious: Yes (Other)
  Sender: FDA-Public Use
  Company Number: ADR-2012UNK101

PATIENT
  Sex: Female

DRUGS (2)
  1. EMTRICITABINE W/TENOFOVIR [Suspect]
     Route: 048
  2. NEVIRAPINE [Concomitant]

REACTIONS (1)
  - No adverse event [None]
